FAERS Safety Report 25874357 (Version 1)
Quarter: 2025Q4

REPORT INFORMATION
  Report Type: Spontaneous
  Country: US (occurrence: US)
  Receive Date: 20251002
  Receipt Date: 20251002
  Transmission Date: 20260118
  Serious: Yes (Other)
  Sender: NOVO NORDISK
  Company Number: US-NOVOPROD-1533456

PATIENT
  Age: 54 Year
  Sex: Female

DRUGS (2)
  1. SEMAGLUTIDE [Suspect]
     Active Substance: SEMAGLUTIDE
     Indication: Obesity
     Dosage: 35 UNITS/1.7 MG DOSE (RECEIVED 4 DOSES)
     Route: 058
     Dates: start: 20250809, end: 20250830
  2. WEGOVY [Suspect]
     Active Substance: SEMAGLUTIDE
     Indication: Obesity
     Dosage: 35 UNITS/1.7 MG DOSE (RECEIVED 4 DOSES)
     Route: 058
     Dates: start: 20250809, end: 20250830

REACTIONS (6)
  - Colitis [Not Recovered/Not Resolved]
  - Dehydration [Not Recovered/Not Resolved]
  - Malaise [Not Recovered/Not Resolved]
  - Infection [Unknown]
  - White blood cell count increased [Unknown]
  - Counterfeit product administered [Recovered/Resolved]

NARRATIVE: CASE EVENT DATE: 20250809
